FAERS Safety Report 9322750 (Version 3)
Quarter: 2014Q3

REPORT INFORMATION
  Report Type: Spontaneous
  Country: US (occurrence: US)
  Receive Date: 20130601
  Receipt Date: 20140827
  Transmission Date: 20150326
  Serious: No
  Sender: FDA-Public Use
  Company Number: US-ASTRAZENECA-2013SE38706

PATIENT
  Age: 56 Year
  Sex: Female
  Weight: 49.9 kg

DRUGS (23)
  1. RANITIDINE [Concomitant]
     Active Substance: RANITIDINE\RANITIDINE HYDROCHLORIDE
     Dates: start: 20120912
  2. PROTONIX [Concomitant]
     Active Substance: PANTOPRAZOLE SODIUM
     Indication: GASTROOESOPHAGEAL REFLUX DISEASE
     Dates: start: 20050708, end: 20081222
  3. PREDNISONE. [Concomitant]
     Active Substance: PREDNISONE
     Dates: start: 20080626
  4. SALSALATE. [Concomitant]
     Active Substance: SALSALATE
     Indication: INFLAMMATION
     Dates: start: 20090717
  5. AMITRIPTYLINE [Concomitant]
     Active Substance: AMITRIPTYLINE
     Dosage: 25 MG BY MOUTH IN THE EVENING AS DIRECTED
     Dates: start: 20060106
  6. ZOLOFT [Concomitant]
     Active Substance: SERTRALINE HYDROCHLORIDE
     Dates: start: 20060301
  7. PROPANOLOL [Concomitant]
     Active Substance: PROPRANOLOL HYDROCHLORIDE
     Dates: start: 20060301
  8. NEXIUM [Suspect]
     Active Substance: ESOMEPRAZOLE MAGNESIUM
     Indication: GASTROOESOPHAGEAL REFLUX DISEASE
     Route: 048
     Dates: start: 2009
  9. MECLIZINE [Concomitant]
     Active Substance: MECLIZINE\MECLIZINE HYDROCHLORIDE
     Indication: DIZZINESS
     Dosage: 25 MG TAKE HALF TO ONE TABLET AS DIRECTED
     Dates: start: 20080725
  10. TRAMADOL HCL [Concomitant]
     Active Substance: TRAMADOL HYDROCHLORIDE
     Indication: PAIN
     Dates: start: 20090504
  11. CARISOPRODOL. [Concomitant]
     Active Substance: CARISOPRODOL
     Indication: MUSCLE RELAXANT THERAPY
     Dates: start: 20061106
  12. NEXIUM [Suspect]
     Active Substance: ESOMEPRAZOLE MAGNESIUM
     Indication: GASTROOESOPHAGEAL REFLUX DISEASE
     Route: 048
     Dates: start: 20090514
  13. IBUPROFEN. [Concomitant]
     Active Substance: IBUPROFEN
     Dates: start: 20080626
  14. FOSAMAX [Concomitant]
     Active Substance: ALENDRONATE SODIUM
     Dates: start: 20060301
  15. PROTONIX [Concomitant]
     Active Substance: PANTOPRAZOLE SODIUM
     Indication: GASTROOESOPHAGEAL REFLUX DISEASE
     Dates: start: 20050708, end: 20081222
  16. RANITIDINE [Concomitant]
     Active Substance: RANITIDINE\RANITIDINE HYDROCHLORIDE
     Dates: start: 20090225, end: 20090928
  17. NEXIUM [Suspect]
     Active Substance: ESOMEPRAZOLE MAGNESIUM
     Indication: GASTROOESOPHAGEAL REFLUX DISEASE
     Route: 048
     Dates: start: 20090514, end: 20120629
  18. OMEPRAZOLE. [Concomitant]
     Active Substance: OMEPRAZOLE
     Dates: start: 20091221
  19. NEXIUM [Suspect]
     Active Substance: ESOMEPRAZOLE MAGNESIUM
     Indication: GASTROOESOPHAGEAL REFLUX DISEASE
     Route: 048
     Dates: start: 20100125
  20. CILOSTAZOL. [Concomitant]
     Active Substance: CILOSTAZOL
     Indication: POOR PERIPHERAL CIRCULATION
     Dates: start: 20080623
  21. LYRICA [Concomitant]
     Active Substance: PREGABALIN
     Dates: start: 20081103
  22. PROMETHAZINE [Concomitant]
     Active Substance: PROMETHAZINE\PROMETHAZINE HYDROCHLORIDE
     Indication: NAUSEA
     Dates: start: 20060301
  23. HYDROCODONE/APAP [Concomitant]
     Active Substance: ACETAMINOPHEN\HYDROCODONE
     Indication: PAIN
     Dosage: 7.5/500 MG, EVERY SIX HOURS AS NEEDED
     Dates: start: 20061106

REACTIONS (8)
  - Osteopenia [Unknown]
  - Back disorder [Unknown]
  - Bone density decreased [Unknown]
  - Bone disorder [Unknown]
  - Multiple fractures [Unknown]
  - Arthritis [Unknown]
  - Movement disorder [Unknown]
  - Osteoporosis [Unknown]

NARRATIVE: CASE EVENT DATE: 2011
